FAERS Safety Report 6855110-6 (Version None)
Quarter: 2010Q3

REPORT INFORMATION
  Report Type: 
  Country: None (occurrence: None)
  Receive Date: 20100717
  Receipt Date: 20081125
  Transmission Date: 20110219
  Serious: Yes (Other)
  Sender: FDA-Public Use
  Company Number: US-PFIZER INC-2007108861

PATIENT
  Sex: Female
  Weight: 81.633 kg

DRUGS (1)
  1. CHANTIX [Suspect]
     Indication: SMOKING CESSATION THERAPY
     Route: 048

REACTIONS (4)
  - ABNORMAL DREAMS [None]
  - HALLUCINATION, VISUAL [None]
  - NAUSEA [None]
  - SLEEP DISORDER [None]
